FAERS Safety Report 17766758 (Version 1)
Quarter: 2020Q2

REPORT INFORMATION
  Report Type: Spontaneous
  Country: US (occurrence: US)
  Receive Date: 20200511
  Receipt Date: 20200511
  Transmission Date: 20200714
  Serious: No
  Sender: FDA-Public Use
  Company Number: US-APOTEX-2020AP010534

PATIENT
  Age: 57 Year
  Sex: Male

DRUGS (5)
  1. ENTACAPONE. [Concomitant]
     Active Substance: ENTACAPONE
     Indication: PARKINSON^S DISEASE
     Dosage: 1 DF, UNK
     Route: 065
  2. CARBIDOPA/LEVODOPA [Suspect]
     Active Substance: CARBIDOPA\LEVODOPA
     Indication: PARKINSON^S DISEASE
     Dosage: 1 DF, UNK, 25/100
     Route: 065
  3. AMANTADINE. [Concomitant]
     Active Substance: AMANTADINE HYDROCHLORIDE
     Indication: PARKINSON^S DISEASE
     Route: 065
  4. CARBIDOPA AND LEVODOPA [Suspect]
     Active Substance: CARBIDOPA\LEVODOPA
     Indication: PARKINSON^S DISEASE
     Dosage: 5 DF, QD, 1 TABLET EVERY 3.5 HOURS FOR 5 DOSES PER DAY
     Route: 065
  5. CARBIDOPA AND LEVODOPA [Suspect]
     Active Substance: CARBIDOPA\LEVODOPA
     Dosage: 1 DF, UNK
     Route: 065

REACTIONS (5)
  - Dyskinesia [Recovering/Resolving]
  - Fall [Recovering/Resolving]
  - Balance disorder [Recovering/Resolving]
  - Gait disturbance [Recovering/Resolving]
  - Condition aggravated [Recovering/Resolving]
